FAERS Safety Report 5404312-4 (Version None)
Quarter: 2007Q3

REPORT INFORMATION
  Report Type: 
  Country: None (occurrence: None)
  Receive Date: 20070713
  Receipt Date: 20070529
  Transmission Date: 20080115
  Serious: Yes (Other)
  Sender: FDA-Public Use
  Company Number: 2007044490

PATIENT
  Sex: Female

DRUGS (1)
  1. DEPO-SUBQ PROVERA 104 [Suspect]
     Dosage: (FIRST INJECTION), SUBCUTANEOUS
     Route: 058
     Dates: start: 20070101, end: 20070101

REACTIONS (1)
  - INJECTION SITE ATROPHY [None]
